FAERS Safety Report 20685760 (Version 2)
Quarter: 2022Q2

REPORT INFORMATION
  Report Type: Spontaneous
  Country: US (occurrence: US)
  Receive Date: 20220407
  Receipt Date: 20220407
  Transmission Date: 20220721
  Serious: No
  Sender: FDA-Public Use
  Company Number: US-ALKERMES INC.-ALK-2022-001662

PATIENT
  Age: 44 Year
  Sex: Female

DRUGS (3)
  1. ARISTADA INITIO [Suspect]
     Active Substance: ARIPIPRAZOLE LAUROXIL
     Indication: Product used for unknown indication
     Dosage: 675 MILLIGRAM, ONE TIME DOSE
     Route: 030
     Dates: start: 20220404, end: 20220404
  2. ARISTADA [Suspect]
     Active Substance: ARIPIPRAZOLE LAUROXIL
     Indication: Product used for unknown indication
     Dosage: 1064 MILLIGRAM, Q8WK
     Route: 030
     Dates: start: 20220404
  3. ABILIFY [Suspect]
     Active Substance: ARIPIPRAZOLE
     Indication: Product used for unknown indication
     Route: 048

REACTIONS (3)
  - Tinnitus [Not Recovered/Not Resolved]
  - Hyperhidrosis [Not Recovered/Not Resolved]
  - Injection site pain [Not Recovered/Not Resolved]

NARRATIVE: CASE EVENT DATE: 20220405
